FAERS Safety Report 14602093 (Version 1)
Quarter: 2018Q1

REPORT INFORMATION
  Report Type: Spontaneous
  Country: US (occurrence: US)
  Receive Date: 20180306
  Receipt Date: 20180306
  Transmission Date: 20180509
  Serious: Yes (Hospitalization, Other)
  Sender: FDA-Public Use
  Company Number: US-AUROBINDO-AUR-APL-2018-009883

PATIENT

DRUGS (1)
  1. NAFCILLIN [Suspect]
     Active Substance: NAFCILLIN\NAFCILLIN SODIUM
     Dosage: 2 GRAM,EVERY 4 HOURS

REACTIONS (6)
  - Faeces discoloured [Recovered/Resolved]
  - Hepatic failure [Recovered/Resolved]
  - Chromaturia [Recovered/Resolved]
  - Yellow skin [Recovered/Resolved]
  - Jaundice [Recovered/Resolved]
  - Weight decreased [Recovered/Resolved]
